FAERS Safety Report 5601172-3 (Version None)
Quarter: 2008Q1

REPORT INFORMATION
  Report Type: 
  Country: None (occurrence: None)
  Receive Date: 20080124
  Receipt Date: 20080115
  Transmission Date: 20080703
  Serious: Yes (Hospitalization)
  Sender: FDA-Public Use
  Company Number: JP-ASTRAZENECA-2008AP00395

PATIENT
  Age: 68 Year
  Sex: Male

DRUGS (5)
  1. CRESTOR [Suspect]
     Indication: HYPERTROPHIC CARDIOMYOPATHY
     Route: 048
     Dates: end: 20080105
  2. LOPRESSOR [Suspect]
     Dosage: DOSE UNKNOWN
     Route: 048
  3. VASOLAN [Suspect]
     Dosage: DOSE UNKNOWN
     Route: 048
  4. WARFARIN [Suspect]
     Dosage: DOSE UNKNOWN
     Route: 048
  5. GASTER D [Suspect]
     Dosage: DOSE UNKNOWN
     Route: 048

REACTIONS (4)
  - ASTHENIA [None]
  - BLOOD CREATINE PHOSPHOKINASE INCREASED [None]
  - PYREXIA [None]
  - RHABDOMYOLYSIS [None]
